FAERS Safety Report 15890655 (Version 1)
Quarter: 2019Q1

REPORT INFORMATION
  Report Type: Spontaneous
  Country: US (occurrence: US)
  Receive Date: 20190130
  Receipt Date: 20190130
  Transmission Date: 20190417
  Serious: Yes (Death)
  Sender: FDA-Public Use
  Company Number: None

PATIENT
  Age: 79 Year
  Sex: Male

DRUGS (2)
  1. ENOXAPARIN [Suspect]
     Active Substance: ENOXAPARIN
  2. WARFARIN [Suspect]
     Active Substance: WARFARIN

REACTIONS (4)
  - Cardio-respiratory arrest [None]
  - Haemoglobin decreased [None]
  - Unresponsive to stimuli [None]
  - Flank pain [None]

NARRATIVE: CASE EVENT DATE: 20181221
